FAERS Safety Report 8002765-9 (Version None)
Quarter: 2011Q4

REPORT INFORMATION
  Report Type: 
  Country: None (occurrence: None)
  Receive Date: 20111222
  Receipt Date: 20111212
  Transmission Date: 20120403
  Serious: Yes (Hospitalization)
  Sender: FDA-Public Use
  Company Number: JP-MYLANLABS-2011S1023562

PATIENT
  Age: 76 Year
  Sex: Male
  Weight: 64 kg

DRUGS (13)
  1. RESTAMIN #1 [Concomitant]
     Indication: ALLERGY PROPHYLAXIS
     Route: 048
     Dates: start: 20090930
  2. NAIXAN /00256201/ [Concomitant]
     Indication: PAIN
     Route: 048
     Dates: start: 20091214
  3. OXYCODONE HCL [Concomitant]
     Indication: CANCER PAIN
     Route: 048
     Dates: start: 20090916
  4. CARBOPLATIN [Suspect]
     Indication: BILE DUCT CANCER
     Route: 041
     Dates: start: 20110628, end: 20111017
  5. URSO /00465701/ [Concomitant]
     Indication: PRODUCT USED FOR UNKNOWN INDICATION
     Route: 048
     Dates: start: 20090825
  6. TS-1 [Concomitant]
     Indication: BILE DUCT CANCER
     Route: 048
     Dates: start: 20110821, end: 20110904
  7. TAXOL [Suspect]
     Indication: BILE DUCT CANCER
     Route: 041
     Dates: start: 20110628
  8. LANSOPRAZOLE [Concomitant]
     Indication: PROPHYLAXIS
     Route: 048
     Dates: start: 20091214
  9. OXYCONTIN [Concomitant]
     Indication: CANCER PAIN
     Route: 048
     Dates: start: 20090916
  10. LACB-R [Concomitant]
     Indication: PRODUCT USED FOR UNKNOWN INDICATION
     Route: 048
     Dates: start: 20091214
  11. MAGNESIUM OXIDE [Concomitant]
     Indication: CONSTIPATION
     Route: 048
     Dates: start: 20090828
  12. GOSHAJINKIGAN [Concomitant]
     Indication: HYPOAESTHESIA
     Route: 048
     Dates: start: 20090925
  13. GEMZAR [Concomitant]
     Indication: BILE DUCT CANCER
     Route: 042
     Dates: start: 20110821, end: 20110904

REACTIONS (1)
  - HYPERSENSITIVITY [None]
